FAERS Safety Report 10213424 (Version 1)
Quarter: 2014Q2

REPORT INFORMATION
  Report Type: Spontaneous
  Country: US (occurrence: None)
  Receive Date: 20140530
  Receipt Date: 20140530
  Transmission Date: 20141212
  Serious: Yes (Other)
  Sender: FDA-Public Use
  Company Number: 2014/038

PATIENT
  Age: 29 Year
  Sex: Female

DRUGS (1)
  1. LEVETIRACETAM (NO PREF. NAME) [Suspect]
     Indication: IDIOPATHIC GENERALISED EPILEPSY

REACTIONS (2)
  - Exposure during pregnancy [None]
  - Convulsion [None]
